FAERS Safety Report 14632645 (Version 1)
Quarter: 2018Q1

REPORT INFORMATION
  Report Type: Spontaneous
  Country: JP (occurrence: JP)
  Receive Date: 20180313
  Receipt Date: 20180313
  Transmission Date: 20180509
  Serious: Yes (Hospitalization)
  Sender: FDA-Public Use
  Company Number: JP-ALLERGAN-1813658US

PATIENT
  Age: 94 Year
  Sex: Male

DRUGS (6)
  1. VOLTAREN [Concomitant]
     Active Substance: DICLOFENAC SODIUM
     Dosage: UNK
  2. SELBEX [Concomitant]
     Active Substance: TEPRENONE
     Dosage: UNK
     Route: 048
  3. LINACLOTIDE - BP [Suspect]
     Active Substance: LINACLOTIDE
     Indication: PRODUCT USED FOR UNKNOWN INDICATION
     Dosage: 0.5 MG, QD AT BEDTIME
     Route: 048
  4. MAGLAX [Concomitant]
     Active Substance: MAGNESIUM OXIDE
     Dosage: UNK
     Route: 065
  5. LANSOPRAZOLE. [Concomitant]
     Active Substance: LANSOPRAZOLE
     Dosage: UNK
     Route: 065
  6. YODEL [Concomitant]
     Active Substance: SENNA LEAF
     Dosage: UNK
     Route: 048

REACTIONS (2)
  - Off label use [Unknown]
  - Decreased appetite [Unknown]
